FAERS Safety Report 10507662 (Version 1)
Quarter: 2014Q4

REPORT INFORMATION
  Report Type: Spontaneous
  Country: CA (occurrence: CA)
  Receive Date: 20141009
  Receipt Date: 20141009
  Transmission Date: 20150528
  Serious: Yes (Other)
  Sender: FDA-Public Use
  Company Number: CA-PFIZER INC-2014274704

PATIENT
  Age: 50 Year
  Sex: Female

DRUGS (9)
  1. PREDNISONE. [Suspect]
     Active Substance: PREDNISONE
     Dosage: 5 MG, UNK
     Route: 065
  2. CELLCEPT [Suspect]
     Active Substance: MYCOPHENOLATE MOFETIL\MYCOPHENOLATE MOFETIL HYDROCHLORIDE
     Route: 065
  3. PROGRAF [Suspect]
     Active Substance: TACROLIMUS\TACROLIMUS ANHYDROUS
     Route: 065
  4. TACROLIMUS. [Suspect]
     Active Substance: TACROLIMUS
     Route: 065
  5. PREDNISONE. [Suspect]
     Active Substance: PREDNISONE
     Dosage: 5 MG, 1X/DAY
     Route: 065
  6. PREDNISONE. [Suspect]
     Active Substance: PREDNISONE
     Dosage: 10 MG, 1X/DAY
     Route: 065
  7. RAPAMUNE [Suspect]
     Active Substance: SIROLIMUS
     Route: 065
  8. PREDNISONE. [Suspect]
     Active Substance: PREDNISONE
     Dosage: 6 MG, 1X/DAY
     Route: 065
  9. ENALAPRIL MALEATE. [Concomitant]
     Active Substance: ENALAPRIL MALEATE
     Route: 065

REACTIONS (13)
  - Blood creatinine increased [Unknown]
  - Systemic sclerosis [Unknown]
  - Scleroderma renal crisis [Unknown]
  - Anorectal disorder [Unknown]
  - Musculoskeletal stiffness [Unknown]
  - Rectal cancer [Unknown]
  - Bowen^s disease [Unknown]
  - Malignant anorectal neoplasm [Unknown]
  - Condition aggravated [Unknown]
  - Renal impairment [Unknown]
  - Blood pressure increased [Unknown]
  - Squamous cell carcinoma [Unknown]
  - Skin tightness [Unknown]
